FAERS Safety Report 6192160-X (Version None)
Quarter: 2009Q2

REPORT INFORMATION
  Report Type: 
  Country: None (occurrence: None)
  Receive Date: 20090515
  Receipt Date: 20090504
  Transmission Date: 20091009
  Serious: Yes (Hospitalization, Other)
  Sender: FDA-Public Use
  Company Number: PHHY2009US17058

PATIENT
  Age: 44 Year
  Sex: Female

DRUGS (23)
  1. CLOZAPINE [Suspect]
     Dosage: 325 MG IN MORNING AND 400 MG MG AT BED TIME
  2. CLOZAPINE [Suspect]
     Dosage: 25 MG, QD
  3. CLOZAPINE [Suspect]
     Dosage: 300 MG, QD
  4. CLOZAPINE [Suspect]
     Dosage: 300 MG AT NOON AND 600 MG AT BED TIME
  5. DIVALPROEX SODIUM [Concomitant]
     Dosage: 3250 MG, QHS
  6. DIVALPROEX SODIUM [Concomitant]
     Dosage: 4000 MG, QHS
  7. HYDROXYZINE [Concomitant]
     Dosage: 50 MG, BID
  8. DESMOPRESSIN ACETATE [Concomitant]
     Dosage: 0.01%, 2 SPRAYS TO EACH NOSTRIL AT BED TIME
     Route: 045
  9. CLONIDINE [Concomitant]
     Dosage: 0.1 MG, BID
  10. MULTI-VITAMIN [Concomitant]
     Dosage: 1 DAILY
  11. ENALAPRIL [Concomitant]
     Dosage: 5 MG, BID
  12. ENALAPRIL [Concomitant]
     Dosage: 10 MG, BID
  13. ENALAPRIL [Concomitant]
     Dosage: 20 MG, BID
  14. DILTIAZEM [Concomitant]
     Dosage: 360 MG/DAY
  15. ASPIRIN [Concomitant]
     Dosage: 81 MG, QD
  16. ALBUTEROL [Concomitant]
     Dosage: 2 PUFFS 4 TIMES DAILY
  17. HYDROCHLOROTHIAZIDE [Concomitant]
     Dosage: 25 MG/DAY
  18. IPRATROPIUM BROMIDE [Concomitant]
     Dosage: 2 PUFFS 4 TIMES/DAY
  19. LITHIUM [Concomitant]
     Dosage: 300 MG/DAY AT NOON
  20. HALOPERIDOL DECANOATE [Concomitant]
     Dosage: 300 MG, QMO
     Route: 030
  21. OXYBUTYNIN CHLORIDE [Concomitant]
     Dosage: 5 MG, BID
  22. LORATADINE [Concomitant]
     Dosage: 10 MG/DAY
  23. ATROPINE [Concomitant]
     Dosage: 4 DROPS IN THE MORNING
     Route: 060

REACTIONS (13)
  - ABDOMINAL DISTENSION [None]
  - BOWEL MOVEMENT IRREGULARITY [None]
  - COLECTOMY TOTAL [None]
  - CONFUSIONAL STATE [None]
  - CONSTIPATION [None]
  - FATIGUE [None]
  - GASTROINTESTINAL SOUNDS ABNORMAL [None]
  - INTESTINAL ANASTOMOSIS [None]
  - INTESTINAL OBSTRUCTION [None]
  - LETHARGY [None]
  - MENTAL STATUS CHANGES [None]
  - SEPSIS [None]
  - VOMITING [None]
